FAERS Safety Report 9350076 (Version 1)
Quarter: 2013Q2

REPORT INFORMATION
  Report Type: Spontaneous
  Country: US (occurrence: US)
  Receive Date: 20130616
  Receipt Date: 20130616
  Transmission Date: 20140414
  Serious: No
  Sender: FDA-Public Use
  Company Number: US-009507513-1306USA004568

PATIENT
  Sex: Female

DRUGS (2)
  1. PEGINTRON [Suspect]
     Dosage: REDIPEN
  2. PEGINTRON [Suspect]
     Dosage: REDIPEN

REACTIONS (2)
  - Injection site swelling [Unknown]
  - Product quality issue [Unknown]
